FAERS Safety Report 10757401 (Version 1)
Quarter: 2015Q1

REPORT INFORMATION
  Report Type: Spontaneous
  Country: US (occurrence: None)
  Receive Date: 20150130
  Receipt Date: 20150130
  Transmission Date: 20150721
  Serious: Yes (Other)
  Sender: FDA-Public Use
  Company Number: UCM201501-000037

PATIENT
  Age: 23 Year
  Sex: Male

DRUGS (6)
  1. MEFENAMIC ACID (MEFENAMIC ACID) [Concomitant]
  2. CLONIDINE HCL [Suspect]
     Active Substance: CLONIDINE HYDROCHLORIDE
     Dosage: 0.2% (W/W)
  3. GABAPENTIN (GABAPENTIN) [Concomitant]
     Active Substance: GABAPENTIN
  4. LIDOACINE (LIDOACINE) [Concomitant]
  5. IMIPRAMINE (IMIPRAMINE) (IMIPRAMINE) [Concomitant]
     Active Substance: IMIPRAMINE
  6. KETAMINE (KETAMINE) [Concomitant]
     Active Substance: KETAMINE

REACTIONS (6)
  - Intentional overdose [None]
  - Toxicity to various agents [None]
  - Hypertensive crisis [None]
  - Subarachnoid haemorrhage [None]
  - Bradycardia [None]
  - Mental status changes [None]
